FAERS Safety Report 10196879 (Version 1)
Quarter: 2014Q2

REPORT INFORMATION
  Report Type: Spontaneous
  Country: US (occurrence: None)
  Receive Date: 20140523
  Receipt Date: 20140523
  Transmission Date: 20141212
  Serious: Yes (Hospitalization)
  Sender: FDA-Public Use
  Company Number: None

PATIENT
  Age: 56 Year
  Sex: Female

DRUGS (13)
  1. VANCOMYCIN [Suspect]
     Indication: ENDOCARDITIS
     Dosage: 1000 EVERY 48 HOURS IV
     Dates: start: 20140106, end: 20140114
  2. ACETAMINOPHEN [Concomitant]
  3. ASPIRIN [Concomitant]
  4. DOCUSATE [Concomitant]
  5. FERROUS SULFATE [Concomitant]
  6. HYDROCHLOROTHIAZIDE [Concomitant]
  7. HYDROMORPHONE [Concomitant]
  8. LABETALOL [Concomitant]
  9. LISINOPRIL [Concomitant]
  10. MAGNESIUM OXIDE [Concomitant]
  11. METOPROLOL [Concomitant]
  12. OMEPRAZOLE [Concomitant]
  13. WARFARIN [Concomitant]

REACTIONS (2)
  - Blood urea increased [None]
  - Blood creatinine increased [None]
